FAERS Safety Report 7151654-0 (Version None)
Quarter: 2010Q4

REPORT INFORMATION
  Report Type: 
  Country: None (occurrence: None)
  Receive Date: 20101124
  Receipt Date: 20101111
  Transmission Date: 20110411
  Serious: Yes (Hospitalization)
  Sender: FDA-Public Use
  Company Number: UTC-002303

PATIENT
  Age: 56 Year
  Sex: Male
  Weight: 125.4 kg

DRUGS (3)
  1. REMODULIN [Suspect]
     Indication: PULMONARY ARTERIAL HYPERTENSION
     Dosage: 61.92 UG/KG (0.043 UG/KG, 1 IN 1 MIN), SUBCUTANEOUS
     Route: 058
     Dates: start: 20080620
  2. LETAIRIS (AMBRISENTAN) [Concomitant]
  3. COUMADIN [Concomitant]

REACTIONS (3)
  - DEVICE INFUSION ISSUE [None]
  - ERYTHEMA [None]
  - EYE SWELLING [None]
